FAERS Safety Report 18109124 (Version 2)
Quarter: 2020Q3

REPORT INFORMATION
  Report Type: Spontaneous
  Country: US (occurrence: US)
  Receive Date: 20200804
  Receipt Date: 20200904
  Transmission Date: 20201103
  Serious: Yes (Disabling, Other)
  Sender: FDA-Public Use
  Company Number: US-009507513-0408USA02176

PATIENT
  Sex: Male

DRUGS (2)
  1. PROPECIA [Suspect]
     Active Substance: FINASTERIDE
     Indication: ALOPECIA
     Dosage: 1 MG, QD
     Route: 048
     Dates: start: 2005
  2. PROPECIA [Suspect]
     Active Substance: FINASTERIDE
     Dosage: 1 MG, QD
     Route: 048
     Dates: start: 201908, end: 20200630

REACTIONS (11)
  - Discomfort [Unknown]
  - Disturbance in sexual arousal [Unknown]
  - Erectile dysfunction [Unknown]
  - Painful ejaculation [Recovering/Resolving]
  - Testicular pain [Recovered/Resolved]
  - Ejaculation disorder [Recovered/Resolved]
  - Alopecia [Unknown]
  - Pain [Unknown]
  - Groin pain [Recovered/Resolved]
  - Varicocele [Unknown]
  - Testicular pain [Recovering/Resolving]

NARRATIVE: CASE EVENT DATE: 2005
